FAERS Safety Report 9394692 (Version 1)
Quarter: 2013Q3

REPORT INFORMATION
  Report Type: Report from Study
  Country: CA (occurrence: CA)
  Receive Date: 20130711
  Receipt Date: 20130711
  Transmission Date: 20140515
  Serious: Yes (Death)
  Sender: FDA-Public Use
  Company Number: PHHY2013CA073364

PATIENT
  Age: 38 Year
  Sex: Male

DRUGS (1)
  1. SANDOSTATIN LAR [Suspect]
     Indication: PROSTATE CANCER
     Dosage: 20 MG, QMO
     Route: 030
     Dates: start: 20130530, end: 20130530

REACTIONS (1)
  - Death [Fatal]
